FAERS Safety Report 9581566 (Version 3)
Quarter: 2013Q4

REPORT INFORMATION
  Report Type: Report from Study
  Country: DE (occurrence: DE)
  Receive Date: 20131002
  Receipt Date: 20131125
  Transmission Date: 20140711
  Serious: Yes (Hospitalization, Other)
  Sender: FDA-Public Use
  Company Number: DE-CELGENEUS-062-21880-13084023

PATIENT
  Age: 69 Year
  Sex: Male

DRUGS (5)
  1. REVLIMID [Suspect]
     Indication: PLASMA CELL MYELOMA
     Dosage: 7.5 MILLIGRAM
     Route: 048
     Dates: start: 20130715, end: 20130819
  2. DEXAMETHASONE [Suspect]
     Indication: PLASMA CELL MYELOMA
     Dosage: 40 MILLIGRAM
     Route: 048
     Dates: start: 20130715, end: 20130819
  3. TRAMADOL [Concomitant]
     Indication: BONE PAIN
     Dosage: 3X20 GTT
     Route: 048
     Dates: start: 20130715
  4. CLEXANE [Concomitant]
     Indication: THROMBOSIS PROPHYLAXIS
     Dosage: 40 UNKNOWN
     Route: 058
     Dates: start: 20130715, end: 20130819
  5. NOVAMIN [Concomitant]
     Indication: BONE PAIN
     Dosage: 4X500 GTT
     Route: 048
     Dates: start: 20130715

REACTIONS (1)
  - Prostate cancer [Recovered/Resolved]
